FAERS Safety Report 16193367 (Version 1)
Quarter: 2019Q2

REPORT INFORMATION
  Report Type: Spontaneous
  Country: US (occurrence: US)
  Receive Date: 20190413
  Receipt Date: 20190413
  Transmission Date: 20190711
  Serious: No
  Sender: FDA-Public Use
  Company Number: US-TEVA-2019-US-1027423

PATIENT
  Age: 86 Year
  Sex: Male

DRUGS (2)
  1. TORASEMIDE TABLET TEVA [Suspect]
     Active Substance: TORSEMIDE
     Indication: CARDIAC FAILURE
     Dosage: 40 MILLIGRAM DAILY;
     Route: 065
     Dates: start: 201807
  2. TORASEMIDE TABLET TEVA [Suspect]
     Active Substance: TORSEMIDE
     Dosage: 20 MILLIGRAM DAILY;
     Route: 065

REACTIONS (4)
  - Malaise [Unknown]
  - Dizziness [Unknown]
  - Discomfort [Unknown]
  - Blood pressure diastolic decreased [Unknown]

NARRATIVE: CASE EVENT DATE: 201901
